FAERS Safety Report 16179389 (Version 3)
Quarter: 2019Q3

REPORT INFORMATION
  Report Type: Spontaneous
  Country: JP (occurrence: JP)
  Receive Date: 20190410
  Receipt Date: 20190813
  Transmission Date: 20191004
  Serious: No
  Sender: FDA-Public Use
  Company Number: JP-PFIZER INC-2018138045

PATIENT
  Age: 48 Year
  Sex: Female
  Weight: 50 kg

DRUGS (1)
  1. PACLITAXEL 30MG/5ML HOSPIRA [Suspect]
     Active Substance: PACLITAXEL
     Indication: CHEMOTHERAPY
     Dosage: 115 MG, UNK (X 12 TIMES)
     Route: 041
     Dates: start: 20180129, end: 20180416

REACTIONS (4)
  - Injection site induration [Not Recovered/Not Resolved]
  - Injection site discolouration [Unknown]
  - Vascular pain [Recovered/Resolved with Sequelae]
  - Injection site inflammation [Unknown]
